FAERS Safety Report 14426136 (Version 1)
Quarter: 2018Q1

REPORT INFORMATION
  Report Type: Spontaneous
  Country: FR (occurrence: FR)
  Receive Date: 20180123
  Receipt Date: 20180123
  Transmission Date: 20180509
  Serious: Yes (Hospitalization)
  Sender: FDA-Public Use
  Company Number: FR-PFIZER INC-2018025266

PATIENT
  Age: 59 Year
  Sex: Female

DRUGS (10)
  1. LYSANXIA [Suspect]
     Active Substance: PRAZEPAM
     Dosage: 120 DF, SINGLE
     Route: 048
     Dates: start: 20171121, end: 20171121
  2. NOCTAMIDE [Suspect]
     Active Substance: LORMETAZEPAM
     Dosage: 14 DF, SINGLE
     Route: 048
     Dates: start: 20171121, end: 20171121
  3. MIANSERIN [Concomitant]
     Active Substance: MIANSERIN
  4. CLOMIPRAMINE [Concomitant]
     Active Substance: CLOMIPRAMINE
  5. LYSANXIA [Suspect]
     Active Substance: PRAZEPAM
     Indication: TOXICITY TO VARIOUS AGENTS
     Dosage: UNK
  6. SINGULAIR [Concomitant]
     Active Substance: MONTELUKAST SODIUM
  7. SERETIDE [Concomitant]
     Active Substance: FLUTICASONE PROPIONATE\SALMETEROL XINAFOATE
  8. QUETIAPINE XR [Concomitant]
     Active Substance: QUETIAPINE
  9. NOCTAMIDE [Suspect]
     Active Substance: LORMETAZEPAM
     Indication: TOXICITY TO VARIOUS AGENTS
     Dosage: UNK
  10. ALPRAZOLAM. [Suspect]
     Active Substance: ALPRAZOLAM
     Indication: TOXICITY TO VARIOUS AGENTS
     Dosage: 30 DF, SINGLE
     Route: 048
     Dates: start: 20171121, end: 20171121

REACTIONS (3)
  - Coma [Recovered/Resolved]
  - Toxicity to various agents [Recovered/Resolved]
  - Intentional overdose [Recovered/Resolved]

NARRATIVE: CASE EVENT DATE: 20171121
